FAERS Safety Report 12111472 (Version 1)
Quarter: 2016Q1

REPORT INFORMATION
  Report Type: Spontaneous
  Country: US (occurrence: US)
  Receive Date: 20160224
  Receipt Date: 20160224
  Transmission Date: 20160526
  Serious: Yes (Death)
  Sender: FDA-Public Use
  Company Number: US-JAZZ-2012-158

PATIENT
  Age: 62 Year
  Sex: Female
  Weight: 40.82 kg

DRUGS (6)
  1. PRIALT [Suspect]
     Active Substance: ZICONOTIDE ACETATE
     Indication: POST LAMINECTOMY SYNDROME
     Dosage: UNK MCG, ONCE/HOUR
     Route: 037
     Dates: start: 201205, end: 20130408
  2. BACLOFEN. [Suspect]
     Active Substance: BACLOFEN
     Dosage: UNK UG, ONCE/HOUR
     Route: 037
  3. BUPIVACAINE [Suspect]
     Active Substance: BUPIVACAINE
     Dosage: UNK MG, ONCE/HOUR
     Route: 037
  4. MORPHINE [Suspect]
     Active Substance: MORPHINE
     Dosage: UNK MG, ONCE/HOUR
     Route: 037
  5. FENTANYL. [Suspect]
     Active Substance: FENTANYL
     Dosage: UNK UG, ONCE/HOUR
     Route: 037
  6. PRIALT [Suspect]
     Active Substance: ZICONOTIDE ACETATE
     Indication: PAIN

REACTIONS (4)
  - Muscle spasms [Not Recovered/Not Resolved]
  - Nausea [Not Recovered/Not Resolved]
  - Pain [Not Recovered/Not Resolved]
  - Drug effect decreased [Not Recovered/Not Resolved]

NARRATIVE: CASE EVENT DATE: 20120523
